FAERS Safety Report 6338575-8 (Version None)
Quarter: 2009Q3

REPORT INFORMATION
  Report Type: 
  Country: None (occurrence: None)
  Receive Date: 20090903
  Receipt Date: 20081210
  Transmission Date: 20100115
  Serious: Yes (Hospitalization, Other)
  Sender: FDA-Public Use
  Company Number: US-ASTRAZENECA-2008UW27092

PATIENT
  Age: 40 Year
  Sex: Male
  Weight: 112 kg

DRUGS (26)
  1. SEROQUEL [Suspect]
     Indication: BIPOLAR DISORDER
     Dosage: 25 MG - 1600 MG
     Route: 048
     Dates: start: 20010329
  2. SEROQUEL [Suspect]
     Indication: DEPRESSION
     Dosage: 25 MG - 1600 MG
     Route: 048
     Dates: start: 20010329
  3. SEROQUEL [Suspect]
     Indication: MOOD SWINGS
     Dosage: 25 MG - 1600 MG
     Route: 048
     Dates: start: 20010329
  4. SEROQUEL [Suspect]
     Route: 048
  5. SEROQUEL [Suspect]
     Route: 048
  6. SEROQUEL [Suspect]
     Route: 048
  7. ZYPREXA [Concomitant]
     Dates: start: 19990101
  8. ZYPREXA [Concomitant]
  9. ZYPREXA [Concomitant]
  10. WELLBUTRIN [Concomitant]
     Dates: start: 19990101
  11. WELLBUTRIN [Concomitant]
  12. LITHIUM CARBONATE [Concomitant]
     Indication: BIPOLAR DISORDER
     Dosage: 300 MG - 1200 MG
     Route: 048
     Dates: start: 20001017
  13. LITHIUM CARBONATE [Concomitant]
     Indication: MOOD SWINGS
     Dosage: 300 MG - 1200 MG
     Route: 048
     Dates: start: 20001017
  14. LITHIUM CARBONATE [Concomitant]
  15. LITHIUM CARBONATE [Concomitant]
  16. PROZAC [Concomitant]
     Dates: start: 20001229
  17. ESKALITH/LITHIUM CARBONATE/LITHOBID [Concomitant]
     Dosage: 300 MG - 1200 MG
     Dates: start: 19990101
  18. DEPAKOTE [Concomitant]
     Indication: BIPOLAR DISORDER
     Dosage: 500 MG - 1200 MG
     Route: 048
     Dates: start: 19990301
  19. DEPAKOTE [Concomitant]
     Indication: MOOD SWINGS
     Dosage: 500 MG - 1200 MG
     Route: 048
     Dates: start: 19990301
  20. DEPAKOTE [Concomitant]
  21. DEPAKOTE [Concomitant]
  22. FLUOXETINE [Concomitant]
  23. ZOLOFT [Concomitant]
     Indication: BIPOLAR DISORDER
     Dosage: 50 MG - 100 MG
     Route: 048
     Dates: start: 20020129
  24. ZOLOFT [Concomitant]
     Indication: MOOD SWINGS
     Dosage: 50 MG - 100 MG
     Route: 048
     Dates: start: 20020129
  25. ZOLOFT [Concomitant]
  26. ZOLOFT [Concomitant]

REACTIONS (6)
  - CHEST PAIN [None]
  - CORONARY ARTERY DISEASE [None]
  - CORONARY ARTERY OCCLUSION [None]
  - GASTROOESOPHAGEAL REFLUX DISEASE [None]
  - OBESITY [None]
  - TYPE 2 DIABETES MELLITUS [None]
